FAERS Safety Report 17225196 (Version 1)
Quarter: 2020Q1

REPORT INFORMATION
  Report Type: Spontaneous
  Country: CN (occurrence: CN)
  Receive Date: 20200102
  Receipt Date: 20200102
  Transmission Date: 20200409
  Serious: Yes (Hospitalization)
  Sender: FDA-Public Use
  Company Number: CN-PFIZER INC-2019558815

PATIENT
  Age: 64 Year
  Sex: Female
  Weight: 70 kg

DRUGS (2)
  1. SUNITINIB MALATE. [Suspect]
     Active Substance: SUNITINIB MALATE
     Indication: RENAL CANCER
     Dosage: 50 MG, CYCLIC (QD FOR 4 WEEKS AND DISCONTINUING FOR 2 WEEKS)
     Route: 048
     Dates: start: 20191023, end: 20191114
  2. SUNITINIB MALATE. [Suspect]
     Active Substance: SUNITINIB MALATE
     Indication: THERAPEUTIC PROCEDURE

REACTIONS (13)
  - C-reactive protein increased [Unknown]
  - Blood uric acid increased [Unknown]
  - Erythema annulare [Recovered/Resolved]
  - Body temperature increased [Unknown]
  - Hepatic function abnormal [Recovered/Resolved]
  - Blood glucose increased [Unknown]
  - Erythema [Unknown]
  - Platelet count decreased [Unknown]
  - Blood creatinine increased [Unknown]
  - Blood urea increased [Unknown]
  - Swelling [Unknown]
  - Jaundice [Recovered/Resolved]
  - Pain [Unknown]

NARRATIVE: CASE EVENT DATE: 20191115
